FAERS Safety Report 4788494-3 (Version None)
Quarter: 2005Q4

REPORT INFORMATION
  Report Type: 
  Country: None (occurrence: None)
  Receive Date: 20051005
  Receipt Date: 20051005
  Transmission Date: 20060501
  Serious: Yes (Hospitalization)
  Sender: FDA-Public Use
  Company Number: None

PATIENT
  Age: 26 Year
  Sex: Female

DRUGS (6)
  1. DURAGESIC-100 [Suspect]
     Indication: PAIN
     Dosage: 200 MG Q 72 HRS   TOPICAL
     Route: 061
  2. ALBUTEROL [Concomitant]
  3. DIPHENHYDRAMINE HCL [Concomitant]
  4. METOCLOPRAMIDE [Concomitant]
  5. APAP TAB [Concomitant]
  6. PHERGAN [Concomitant]

REACTIONS (5)
  - APPLICATION SITE DERMATITIS [None]
  - APPLICATION SITE DISCHARGE [None]
  - APPLICATION SITE ERYTHEMA [None]
  - SKIN LESION [None]
  - STAPHYLOCOCCAL BACTERAEMIA [None]
